FAERS Safety Report 15093474 (Version 1)
Quarter: 2018Q3

REPORT INFORMATION
  Report Type: Spontaneous
  Country: US (occurrence: US)
  Receive Date: 20180629
  Receipt Date: 20180629
  Transmission Date: 20181010
  Serious: Yes (Life-Threatening, Hospitalization, Disabling, Other)
  Sender: FDA-Public Use
  Company Number: US-INDIVIOR LIMITED-INDV-111903-2018

PATIENT
  Age: 33 Year
  Sex: Male

DRUGS (4)
  1. SUBOXONE [Suspect]
     Active Substance: BUPRENORPHINE HYDROCHLORIDE\NALOXONE HYDROCHLORIDE
     Indication: DRUG DEPENDENCE
     Dosage: 8 MG, TWICE DAILY
     Route: 060
  2. FENTANYL. [Suspect]
     Active Substance: FENTANYL
     Indication: PRODUCT USED FOR UNKNOWN INDICATION
     Dosage: UNKNOWN
     Route: 065
     Dates: start: 201705
  3. BUPRENORPHINE/NALOXONE 8 MG TABLET [Suspect]
     Active Substance: BUPRENORPHINE\NALOXONE
     Indication: DRUG DEPENDENCE
     Dosage: 8 MG, TWICE DAILY
     Route: 060
  4. BUPRENORPHINE/NALOXONE 8 MG TABLET [Suspect]
     Active Substance: BUPRENORPHINE\NALOXONE
     Dosage: 8 MG, HALF IN MORNING, HALF AT NIGHT
     Route: 060

REACTIONS (18)
  - Cerebrovascular accident [Recovered/Resolved]
  - Road traffic accident [Recovered/Resolved]
  - Generalised tonic-clonic seizure [Not Recovered/Not Resolved]
  - Cough [Not Recovered/Not Resolved]
  - Intentional underdose [Not Recovered/Not Resolved]
  - Disability [Unknown]
  - Myocardial infarction [Recovered/Resolved]
  - Drug dependence [Recovered/Resolved]
  - Anxiety [Not Recovered/Not Resolved]
  - Drug detoxification [Recovered/Resolved]
  - Pyrexia [Recovered/Resolved]
  - Bronchitis [Not Recovered/Not Resolved]
  - Wrong technique in product usage process [Not Recovered/Not Resolved]
  - Brain injury [Unknown]
  - Inappropriate schedule of drug administration [Not Recovered/Not Resolved]
  - Drug dependence [Not Recovered/Not Resolved]
  - Cardiac arrest [Recovered/Resolved]
  - Speech disorder [Recovering/Resolving]

NARRATIVE: CASE EVENT DATE: 2017
